FAERS Safety Report 14873633 (Version 1)
Quarter: 2018Q2

REPORT INFORMATION
  Report Type: Report from Study
  Country: None (occurrence: US)
  Receive Date: 20180510
  Receipt Date: 20180510
  Transmission Date: 20180711
  Serious: Yes (Other)
  Sender: FDA-Public Use
  Company Number: US-ABBVIE-17K-163-2196329-00

PATIENT
  Age: 53 Year
  Sex: Male

DRUGS (1)
  1. HUMIRA [Suspect]
     Active Substance: ADALIMUMAB
     Indication: CROHN^S DISEASE
     Route: 058
     Dates: start: 201702

REACTIONS (6)
  - Bronchitis [Unknown]
  - Pyoderma gangrenosum [Recovered/Resolved]
  - Gastric ulcer [Not Recovered/Not Resolved]
  - Skin atrophy [Not Recovered/Not Resolved]
  - Abdominal adhesions [Unknown]
  - Ear infection [Unknown]

NARRATIVE: CASE EVENT DATE: 2017
